FAERS Safety Report 5558672-4 (Version None)
Quarter: 2007Q4

REPORT INFORMATION
  Report Type: 
  Country: None (occurrence: None)
  Receive Date: 20071214
  Receipt Date: 20071203
  Transmission Date: 20080405
  Serious: Yes (Other)
  Sender: FDA-Public Use
  Company Number: US-PFIZER INC-2007102825

PATIENT
  Sex: Female
  Weight: 91 kg

DRUGS (4)
  1. CHANTIX [Suspect]
     Indication: SMOKING CESSATION THERAPY
     Dates: start: 20071126, end: 20071201
  2. SEROQUEL [Concomitant]
  3. PRILOSEC [Concomitant]
  4. GABITRIL [Concomitant]

REACTIONS (11)
  - ABNORMAL BEHAVIOUR [None]
  - AMNESIA [None]
  - ASTHENIA [None]
  - CATATONIA [None]
  - DIZZINESS [None]
  - FATIGUE [None]
  - HALLUCINATION [None]
  - LOSS OF CONSCIOUSNESS [None]
  - SOMNOLENCE [None]
  - THINKING ABNORMAL [None]
  - TRANSIENT ISCHAEMIC ATTACK [None]
